FAERS Safety Report 10149007 (Version 1)
Quarter: 2014Q2

REPORT INFORMATION
  Report Type: Spontaneous
  Country: US (occurrence: US)
  Receive Date: 20140502
  Receipt Date: 20140502
  Transmission Date: 20141212
  Serious: Yes (Hospitalization)
  Sender: FDA-Public Use
  Company Number: US-ROCHE-1390942

PATIENT
  Age: 63 Year
  Sex: Male
  Weight: 103.1 kg

DRUGS (5)
  1. ACTIVASE [Suspect]
     Indication: HEPARIN-INDUCED THROMBOCYTOPENIA
     Dosage: 0.2-MG/ML
     Route: 065
  2. ACTIVASE [Suspect]
     Indication: THROMBOSIS
     Dosage: 0.033-MG/ML
     Route: 065
  3. ACTIVASE [Suspect]
     Indication: DEEP VEIN THROMBOSIS
     Dosage: 0.5 MG/HR, WHICH WAS INCREASED TO 0.75 MG/HR
     Route: 065
  4. ACTIVASE [Suspect]
     Indication: SUPERIOR VENA CAVA SYNDROME
  5. FILGRASTIM [Suspect]
     Indication: COLONY STIMULATING FACTOR THERAPY
     Route: 065

REACTIONS (3)
  - Epistaxis [Recovered/Resolved]
  - Hypotension [Recovered/Resolved]
  - Deep vein thrombosis [Recovered/Resolved]
